FAERS Safety Report 9773344 (Version 3)
Quarter: 2014Q2

REPORT INFORMATION
  Report Type: Report from Study
  Country: BR (occurrence: BR)
  Receive Date: 20131219
  Receipt Date: 20140604
  Transmission Date: 20141212
  Serious: Yes (Other)
  Sender: FDA-Public Use
  Company Number: BR-US-EMD SERONO, INC.-7257183

PATIENT
  Age: 31 Year
  Sex: Female

DRUGS (2)
  1. REBIF [Suspect]
     Indication: MULTIPLE SCLEROSIS
     Dates: start: 20130723
  2. DIPYRONE [Concomitant]
     Indication: MULTIPLE SCLEROSIS

REACTIONS (10)
  - Blood pressure increased [Recovering/Resolving]
  - Rhinitis [Unknown]
  - Anxiety [Unknown]
  - Neck pain [Unknown]
  - Polymenorrhoea [Unknown]
  - Nervousness [Unknown]
  - Pallor [Unknown]
  - Tremor [Unknown]
  - Pain [Unknown]
  - Headache [Unknown]
